FAERS Safety Report 7957260-X (Version None)
Quarter: 2011Q4

REPORT INFORMATION
  Report Type: 
  Country: None (occurrence: None)
  Receive Date: 20111205
  Receipt Date: 20111129
  Transmission Date: 20120403
  Serious: Yes (Hospitalization)
  Sender: FDA-Public Use
  Company Number: PL-GLAXOSMITHKLINE-Z0012679A

PATIENT
  Sex: Female
  Weight: 77.5 kg

DRUGS (3)
  1. ESSENTIALE FORTE [Concomitant]
     Indication: HEPATIC FUNCTION ABNORMAL
     Dosage: 600MG THREE TIMES PER DAY
     Route: 048
     Dates: start: 20111102
  2. CHLORAMBUCIL [Suspect]
     Indication: CHRONIC LYMPHOCYTIC LEUKAEMIA
     Route: 048
     Dates: start: 20110324
  3. OFATUMUMAB [Suspect]
     Indication: CHRONIC LYMPHOCYTIC LEUKAEMIA
     Route: 042
     Dates: start: 20110324

REACTIONS (1)
  - HEPATIC ENZYME INCREASED [None]
